FAERS Safety Report 22245352 (Version 1)
Quarter: 2023Q2

REPORT INFORMATION
  Report Type: Spontaneous
  Country: GB (occurrence: GB)
  Receive Date: 20230424
  Receipt Date: 20230424
  Transmission Date: 20230722
  Serious: Yes (Other)
  Sender: FDA-Public Use
  Company Number: GB-AstraZeneca-2023A085406

PATIENT
  Sex: Female

DRUGS (1)
  1. FULVESTRANT [Suspect]
     Active Substance: FULVESTRANT
     Indication: Breast cancer metastatic
     Dosage: PREFILLED SYRINGE
     Route: 030

REACTIONS (5)
  - Electrocardiogram QT prolonged [Unknown]
  - Metastases to liver [Unknown]
  - Neutropenia [Unknown]
  - Carbohydrate antigen 15-3 increased [Unknown]
  - Diarrhoea [Unknown]
